FAERS Safety Report 5324697-7 (Version None)
Quarter: 2007Q2

REPORT INFORMATION
  Report Type: 
  Country: None (occurrence: None)
  Receive Date: 20070220
  Receipt Date: 20061218
  Transmission Date: 20071010
  Serious: No
  Sender: FDA-Public Use
  Company Number: WAES 0612USA02999

PATIENT
  Age: 80 Year
  Sex: Female

DRUGS (11)
  1. JANUVIA [Suspect]
     Indication: DIABETES MELLITUS NON-INSULIN-DEPENDENT
     Dosage: 100 MG/DAILY/PO
     Route: 048
     Dates: start: 20061118, end: 20061119
  2. ACTOS [Concomitant]
  3. ANTARA [Concomitant]
  4. CHANTIX [Concomitant]
  5. SINGULAIR [Concomitant]
  6. SPIRIVA [Concomitant]
  7. VYTORIN [Concomitant]
  8. ZESTRIL [Concomitant]
  9. ASPIRIN [Concomitant]
  10. METFORMIN HCL [Concomitant]
  11. RANITIDINE [Concomitant]

REACTIONS (1)
  - HYPOGLYCAEMIA [None]
